FAERS Safety Report 10697335 (Version 1)
Quarter: 2015Q1

REPORT INFORMATION
  Report Type: Spontaneous
  Country: US (occurrence: US)
  Receive Date: 20150108
  Receipt Date: 20150108
  Transmission Date: 20150721
  Serious: No
  Sender: FDA-Public Use
  Company Number: US-BRISTOL-MYERS SQUIBB COMPANY-BMS-2014-004043

PATIENT
  Sex: Female
  Weight: 128 kg

DRUGS (1)
  1. BYDUREON [Suspect]
     Active Substance: EXENATIDE
     Indication: PRODUCT USED FOR UNKNOWN INDICATION
     Route: 065

REACTIONS (6)
  - Hiccups [Unknown]
  - Drug ineffective [Unknown]
  - Eructation [Unknown]
  - Nausea [Unknown]
  - Nodule [Unknown]
  - Drug dose omission [Unknown]
